FAERS Safety Report 24883172 (Version 1)
Quarter: 2025Q1

REPORT INFORMATION
  Report Type: Spontaneous
  Country: GR (occurrence: GR)
  Receive Date: 20250124
  Receipt Date: 20250124
  Transmission Date: 20250408
  Serious: Yes (Other)
  Sender: SANDOZ
  Company Number: GR-ABBVIE-5527973

PATIENT
  Age: 14 Year
  Sex: Female

DRUGS (5)
  1. ADALIMUMAB [Suspect]
     Active Substance: ADALIMUMAB
     Indication: Juvenile idiopathic arthritis
     Dosage: 40 MG, Q2W
     Route: 058
  2. PREDNISOLONE [Concomitant]
     Active Substance: PREDNISOLONE
     Route: 065
  3. PREDNISOLONE [Concomitant]
     Active Substance: PREDNISOLONE
     Indication: Juvenile spondyloarthritis
     Route: 065
  4. SECUKINUMAB [Concomitant]
     Active Substance: SECUKINUMAB
     Indication: Product used for unknown indication
     Dosage: 150 MILLIGRAM, QWK FOR 4 WEEKS
     Route: 065
  5. SECUKINUMAB [Concomitant]
     Active Substance: SECUKINUMAB
     Route: 065

REACTIONS (7)
  - Myocarditis [Recovered/Resolved]
  - Cardiac failure [Recovered/Resolved]
  - Dyspnoea exertional [Unknown]
  - Ejection fraction decreased [Unknown]
  - Fatigue [Unknown]
  - Chest pain [Unknown]
  - Off label use [Unknown]
